FAERS Safety Report 7041392-7 (Version None)
Quarter: 2010Q4

REPORT INFORMATION
  Report Type: 
  Country: None (occurrence: None)
  Receive Date: 20101013
  Receipt Date: 20101005
  Transmission Date: 20110411
  Serious: Yes (Other)
  Sender: FDA-Public Use
  Company Number: US-SANOFI-AVENTIS-2010SA058141

PATIENT
  Age: 83 Year
  Sex: Female
  Weight: 72 kg

DRUGS (11)
  1. PLAVIX [Suspect]
     Indication: STENT PLACEMENT
     Route: 048
     Dates: start: 20040101, end: 20050101
  2. PLAVIX [Suspect]
     Route: 048
     Dates: start: 20040101, end: 20050101
  3. PLAVIX [Suspect]
     Route: 048
     Dates: start: 20100803, end: 20100929
  4. PLAVIX [Suspect]
     Route: 048
     Dates: start: 20100803, end: 20100929
  5. PROTONIX [Concomitant]
  6. ATENOLOL [Concomitant]
  7. NORVASC [Concomitant]
  8. ACETYLSALICYLIC ACID SRT [Concomitant]
  9. VITAMIN B6 [Concomitant]
  10. NITROGLYCERIN [Concomitant]
  11. SENNA [Concomitant]
     Indication: LAXATIVE SUPPORTIVE CARE

REACTIONS (2)
  - AGGRESSION [None]
  - PSYCHOTIC DISORDER [None]
